FAERS Safety Report 15835973 (Version 2)
Quarter: 2019Q1

REPORT INFORMATION
  Report Type: Spontaneous
  Country: GB (occurrence: GB)
  Receive Date: 20190117
  Receipt Date: 20190315
  Transmission Date: 20190417
  Serious: Yes (Life-Threatening)
  Sender: FDA-Public Use
  Company Number: GB-SUN PHARMACEUTICAL INDUSTRIES LTD-2019RR-196367

PATIENT
  Age: 33 Year
  Sex: Female
  Weight: 83 kg

DRUGS (2)
  1. SERTRALINE [Suspect]
     Active Substance: SERTRALINE HYDROCHLORIDE
     Indication: DEPRESSED MOOD
     Dosage: 50 MILLIGRAM, DAILY
     Route: 048
     Dates: start: 20180705, end: 20180730
  2. SERTRALINE [Suspect]
     Active Substance: SERTRALINE HYDROCHLORIDE
     Dosage: 100 MILLIGRAM
     Route: 048
     Dates: start: 20180731, end: 20181223

REACTIONS (2)
  - Suicide attempt [Recovered/Resolved with Sequelae]
  - Withdrawal syndrome [Unknown]

NARRATIVE: CASE EVENT DATE: 20181225
